FAERS Safety Report 10841214 (Version 1)
Quarter: 2015Q1

REPORT INFORMATION
  Report Type: Spontaneous
  Country: IT (occurrence: None)
  Receive Date: 20150218
  Receipt Date: 20150218
  Transmission Date: 20150721
  Serious: Yes (Other)
  Sender: FDA-Public Use
  Company Number: FK201500768

PATIENT
  Age: 78 Year
  Sex: Male
  Weight: 85 kg

DRUGS (2)
  1. PROPOFOL (MANUFACTURER UNKNOWN) (PROPOFOL) (PROPOFOL) [Suspect]
     Active Substance: PROPOFOL
     Indication: SEDATIVE THERAPY
     Route: 041
     Dates: start: 20150125, end: 20150128
  2. REMIFENTANIL (REMIFENTANYL) [Concomitant]

REACTIONS (1)
  - Post-injection delirium sedation syndrome [None]

NARRATIVE: CASE EVENT DATE: 20150127
